FAERS Safety Report 25889603 (Version 1)
Quarter: 2025Q4

REPORT INFORMATION
  Report Type: Spontaneous
  Country: SG (occurrence: SG)
  Receive Date: 20251007
  Receipt Date: 20251007
  Transmission Date: 20260118
  Serious: Yes (Hospitalization, Other)
  Sender: AMGEN
  Company Number: SG-AMGEN-SGPSP2025194466

PATIENT
  Age: 75 Year
  Sex: Female

DRUGS (4)
  1. FILGRASTIM [Suspect]
     Active Substance: FILGRASTIM
     Indication: Breast cancer stage III
     Dosage: UNK
     Route: 065
     Dates: start: 2024
  2. DOCETAXEL [Suspect]
     Active Substance: DOCETAXEL
     Indication: Breast cancer stage III
     Dosage: UNK
     Route: 065
     Dates: start: 2024
  3. PERTUZUMAB [Concomitant]
     Active Substance: PERTUZUMAB
     Indication: Breast cancer stage III
     Dosage: UNK
     Route: 065
     Dates: start: 2024
  4. TRASTUZUMAB [Concomitant]
     Active Substance: TRASTUZUMAB
     Indication: Breast cancer stage III
     Dosage: UNK
     Route: 065
     Dates: start: 2024

REACTIONS (6)
  - Catatonia [Recovered/Resolved]
  - Delirium [Unknown]
  - Acute kidney injury [Unknown]
  - Metabolic acidosis [Unknown]
  - Hypophagia [Recovered/Resolved]
  - Vomiting [Unknown]

NARRATIVE: CASE EVENT DATE: 20240101
